FAERS Safety Report 6444203-3 (Version None)
Quarter: 2009Q4

REPORT INFORMATION
  Report Type: 
  Country: None (occurrence: None)
  Receive Date: 20091118
  Receipt Date: 20091103
  Transmission Date: 20100525
  Serious: Yes (Hospitalization)
  Sender: FDA-Public Use
  Company Number: GB-SOLVAY-00209006967

PATIENT
  Age: 71 Year
  Sex: Female

DRUGS (13)
  1. PERINDOPRIL ERBUMINE [Suspect]
     Indication: DRUG USE FOR UNKNOWN INDICATION
     Dosage: DAILY DOSE:  UNKNOWN
     Route: 048
  2. GLICLAZIDE NOS TABLET [Interacting]
     Indication: DRUG USE FOR UNKNOWN INDICATION
     Dosage: DAILY DOSE: 120 MILLIGRAM(S)
     Route: 048
     Dates: end: 20090101
  3. GLICLAZIDE NOS TABLET [Interacting]
     Dosage: DAILY DOSE: 80 MILLIGRAM(S)
     Route: 048
     Dates: start: 20090101
  4. ALLOPURINOL [Interacting]
     Indication: GOUT
     Dosage: DAILY DOSE:  UNKNOWN
     Route: 048
  5. METFORMIN HCL [Interacting]
     Indication: DRUG USE FOR UNKNOWN INDICATION
     Dosage: DAILY DOSE: 2 GRAM(S)
     Route: 048
     Dates: end: 20090101
  6. ASPIRIN [Interacting]
     Indication: DRUG USE FOR UNKNOWN INDICATION
     Dosage: DAILY DOSE:  UNKNOWN
     Route: 065
  7. ATENOLOL [Interacting]
     Indication: DRUG USE FOR UNKNOWN INDICATION
     Dosage: DAILY DOSE:  UNKNOWN
     Route: 048
  8. BENDROFLUMETHIAZIDE [Interacting]
     Indication: DRUG USE FOR UNKNOWN INDICATION
     Dosage: DAILY DOSE:  UNKNOWN
     Route: 065
  9. CLOPIDOGREL [Interacting]
     Indication: DRUG USE FOR UNKNOWN INDICATION
     Dosage: DAILY DOSE:  UNKNOWN
     Route: 065
  10. DOXAZOSIN [Interacting]
     Indication: DRUG USE FOR UNKNOWN INDICATION
     Dosage: DAILY DOSE:  UNKNOWN
     Route: 065
  11. IRBESARTAN [Interacting]
     Indication: DRUG USE FOR UNKNOWN INDICATION
     Dosage: DAILY DOSE:  UNKNOWN
     Route: 065
  12. ALCOHOL [Interacting]
     Indication: ALCOHOL USE
     Dosage: DAILY DOSE:  UNKNOWN; WEEKLY INTAKE OF 12-14 UNITS
     Route: 065
     Dates: end: 20090101
  13. ALCOHOL [Interacting]
     Dosage: DAILY DOSE:  UNKNOWN; APPROXIMATELY 9 UNITS
     Route: 065
     Dates: start: 20090101

REACTIONS (4)
  - DRUG INTERACTION [None]
  - HYPOGLYCAEMIA [None]
  - LACTIC ACIDOSIS [None]
  - RENAL FAILURE ACUTE [None]
